FAERS Safety Report 20562876 (Version 1)
Quarter: 2022Q1

REPORT INFORMATION
  Report Type: Other
  Country: US (occurrence: None)
  Receive Date: 20220307
  Receipt Date: 20220307
  Transmission Date: 20220423
  Serious: No
  Sender: FDA-Public Use
  Company Number: US-ROCHE-3039799

PATIENT
  Sex: Female

DRUGS (1)
  1. OCREVUS [Suspect]
     Active Substance: OCRELIZUMAB
     Indication: Multiple sclerosis
     Dosage: 300 MG DAY 300 MG DAY 15
     Route: 042
     Dates: start: 20190128

REACTIONS (2)
  - Tonsillitis [Not Recovered/Not Resolved]
  - COVID-19 [Recovered/Resolved]
